FAERS Safety Report 5659859-2 (Version None)
Quarter: 2008Q1

REPORT INFORMATION
  Report Type: 
  Country: None (occurrence: None)
  Receive Date: 20080311
  Receipt Date: 20070727
  Transmission Date: 20080703
  Serious: No
  Sender: FDA-Public Use
  Company Number: US-BAYER-200712410BCC

PATIENT
  Age: 71 Year
  Sex: Male
  Weight: 122 kg

DRUGS (10)
  1. ALEVE [Suspect]
     Indication: ARTHRITIS
     Dosage: TOTAL DAILY DOSE: 220 MG  UNIT DOSE: 220 MG
     Route: 048
     Dates: start: 20070713
  2. AVALIDE [Concomitant]
  3. DITROPAN XL [Concomitant]
  4. SYNTHROID [Concomitant]
  5. ZETIA [Concomitant]
  6. TOPROL [Concomitant]
  7. CADUET [Concomitant]
  8. SPIRONOLACTONE [Concomitant]
  9. METFORMIN HCL [Concomitant]
  10. DOXAZOSIN MESYLATE [Concomitant]

REACTIONS (1)
  - OEDEMA PERIPHERAL [None]
